FAERS Safety Report 6222647-2 (Version None)
Quarter: 2009Q2

REPORT INFORMATION
  Report Type: 
  Country: None (occurrence: None)
  Receive Date: 20090609
  Receipt Date: 20090609
  Transmission Date: 20091009
  Serious: Yes (Other)
  Sender: FDA-Public Use
  Company Number: None

PATIENT
  Age: 77 Year
  Sex: Male
  Weight: 80.7403 kg

DRUGS (2)
  1. CARBOPLATIN [Suspect]
     Indication: RENAL CANCER
     Dosage: 484 MG EVERY TWO WEEKS IV DRIP 2000 MG EVERY TWO WEEKS IV DRIP
     Route: 041
     Dates: start: 20090427, end: 20090526
  2. GEMZAR [Suspect]
     Dosage: 2000 MG EVERY TWO WEEKS IV DRIP
     Route: 041

REACTIONS (2)
  - NAUSEA [None]
  - VOMITING [None]
